FAERS Safety Report 16807209 (Version 1)
Quarter: 2019Q3

REPORT INFORMATION
  Report Type: Spontaneous
  Country: US (occurrence: US)
  Receive Date: 20190913
  Receipt Date: 20190913
  Transmission Date: 20191005
  Serious: Yes (Other)
  Sender: FDA-Public Use
  Company Number: US-GILEAD-2019-0427739

PATIENT

DRUGS (1)
  1. YESCARTA [Suspect]
     Active Substance: AXICABTAGENE CILOLEUCEL
     Indication: PRODUCT USED FOR UNKNOWN INDICATION
     Dosage: UNK
     Route: 042
     Dates: start: 20190501, end: 20190501

REACTIONS (2)
  - Cytokine release syndrome [Recovered/Resolved]
  - Parainfluenzae virus infection [Not Recovered/Not Resolved]

NARRATIVE: CASE EVENT DATE: 20190502
